FAERS Safety Report 22211406 (Version 1)
Quarter: 2023Q2

REPORT INFORMATION
  Report Type: Spontaneous
  Country: US (occurrence: None)
  Receive Date: 20230413
  Receipt Date: 20230413
  Transmission Date: 20230722
  Serious: Yes (Other)
  Sender: FDA-Public Use
  Company Number: None

PATIENT
  Age: 74 Year
  Sex: Male
  Weight: 91.7 kg

DRUGS (2)
  1. CYTOXAN [Suspect]
     Active Substance: CYCLOPHOSPHAMIDE
  2. BACTRIM [Suspect]
     Active Substance: SULFAMETHOXAZOLE\TRIMETHOPRIM

REACTIONS (7)
  - Infusion related reaction [None]
  - Ear pruritus [None]
  - Ear discomfort [None]
  - Erythema [None]
  - Burning sensation [None]
  - Urticaria [None]
  - Stomatitis [None]

NARRATIVE: CASE EVENT DATE: 20230408
